FAERS Safety Report 19220772 (Version 2)
Quarter: 2021Q2

REPORT INFORMATION
  Report Type: Other
  Country: US (occurrence: US)
  Receive Date: 20210506
  Receipt Date: 20210508
  Transmission Date: 20210717
  Serious: Yes (Death)
  Sender: FDA-Public Use
  Company Number: US-ROCHE-2755301

PATIENT
  Age: 56 Year
  Sex: Male

DRUGS (17)
  1. HERCEPTIN [Suspect]
     Active Substance: TRASTUZUMAB
     Indication: MALIGNANT MIDDLE EAR NEOPLASM
     Dosage: INFUSE 464MG INTRAVENOUSLY EVERY 3 WEEK
     Route: 042
  2. PERJETA [Suspect]
     Active Substance: PERTUZUMAB
     Indication: MALIGNANT MIDDLE EAR NEOPLASM
     Dosage: INFUSE 840 MG INTRAVENEOUSLY LOADING DOSE ON DAY 1
     Route: 042
  3. PERJETA [Suspect]
     Active Substance: PERTUZUMAB
     Indication: METASTASIS
  4. KADCYLA [Suspect]
     Active Substance: ADO-TRASTUZUMAB EMTANSINE
     Indication: METASTASES TO BONE
     Dosage: INFUSE 276.2MG INTRAVENOUSLY EVERY 21 DAY(S)
     Route: 042
  5. HERCEPTIN [Suspect]
     Active Substance: TRASTUZUMAB
     Indication: METASTASES TO SKIN
  6. PERJETA [Suspect]
     Active Substance: PERTUZUMAB
     Indication: NASAL CAVITY CANCER
     Dosage: INFUSE 420MG INTRAVENOUSLY EVERY 3 WEEKS
     Route: 042
  7. PERJETA [Suspect]
     Active Substance: PERTUZUMAB
     Indication: METASTASES TO SKIN
  8. PERJETA [Suspect]
     Active Substance: PERTUZUMAB
     Indication: NEOPLASM MALIGNANT
  9. KADCYLA [Suspect]
     Active Substance: ADO-TRASTUZUMAB EMTANSINE
     Indication: NASAL CAVITY CANCER
  10. KADCYLA [Suspect]
     Active Substance: ADO-TRASTUZUMAB EMTANSINE
     Indication: METASTASES TO SKIN
  11. PERJETA [Suspect]
     Active Substance: PERTUZUMAB
     Indication: METASTASES TO BONE
  12. KADCYLA [Suspect]
     Active Substance: ADO-TRASTUZUMAB EMTANSINE
     Indication: METASTASIS
  13. KADCYLA [Suspect]
     Active Substance: ADO-TRASTUZUMAB EMTANSINE
     Indication: MALIGNANT MIDDLE EAR NEOPLASM
  14. HERCEPTIN [Suspect]
     Active Substance: TRASTUZUMAB
     Indication: NASAL CAVITY CANCER
     Dosage: INFUSE 640 MG INTRAVENOUSLY LOADING DOSE ON DAY 1
     Route: 042
  15. HERCEPTIN [Suspect]
     Active Substance: TRASTUZUMAB
     Indication: METASTASIS
  16. HERCEPTIN [Suspect]
     Active Substance: TRASTUZUMAB
     Indication: METASTASES TO BONE
  17. HERCEPTIN [Suspect]
     Active Substance: TRASTUZUMAB
     Indication: NEOPLASM MALIGNANT

REACTIONS (2)
  - Off label use [Unknown]
  - Death [Fatal]

NARRATIVE: CASE EVENT DATE: 20210428
